FAERS Safety Report 7763750-5 (Version None)
Quarter: 2011Q3

REPORT INFORMATION
  Report Type: 
  Country: None (occurrence: None)
  Receive Date: 20110921
  Receipt Date: 20110918
  Transmission Date: 20111222
  Serious: Yes (Hospitalization, Other)
  Sender: FDA-Public Use
  Company Number: DE-SHIRE-SPV1-2011-00315

PATIENT
  Sex: Female
  Weight: 50 kg

DRUGS (1)
  1. METHYLPHENIDATE HCL [Suspect]
     Indication: PRODUCT USED FOR UNKNOWN INDICATION
     Dosage: UNK, UNKNOWN
     Route: 048

REACTIONS (6)
  - AGITATION [None]
  - TACHYCARDIA [None]
  - INTENTIONAL OVERDOSE [None]
  - DIASTOLIC HYPERTENSION [None]
  - DYSKINESIA [None]
  - SUICIDE ATTEMPT [None]
